FAERS Safety Report 8078455-3 (Version None)
Quarter: 2012Q1

REPORT INFORMATION
  Report Type: 
  Country: None (occurrence: None)
  Receive Date: 20120127
  Receipt Date: 20120127
  Transmission Date: 20120608
  Serious: Yes (Death)
  Sender: FDA-Public Use
  Company Number: None

PATIENT
  Age: 59 Year
  Sex: Male

DRUGS (7)
  1. METOPROLOL TARTRATE [Concomitant]
  2. DIGOXIN [Concomitant]
  3. OMEPRAZOLE [Concomitant]
  4. FUROSEMIDE [Concomitant]
  5. POTASSIUM CHLORIDE [Concomitant]
  6. LORAZEPAM [Concomitant]
  7. REVLIMID [Suspect]
     Indication: MULTIPLE MYELOMA
     Dosage: REVLIMID 10 MG DAILY ORALLY OFF/ON
     Route: 048
     Dates: start: 20070101, end: 20110101

REACTIONS (8)
  - PLEURAL EFFUSION [None]
  - RASH MACULO-PAPULAR [None]
  - CORNEAL ABRASION [None]
  - EYE PRURITUS [None]
  - ABDOMINAL PAIN [None]
  - DIARRHOEA [None]
  - RASH ERYTHEMATOUS [None]
  - ACUTE GRAFT VERSUS HOST DISEASE [None]
